FAERS Safety Report 19098005 (Version 1)
Quarter: 2021Q2

REPORT INFORMATION
  Report Type: Spontaneous
  Country: US (occurrence: US)
  Receive Date: 20210406
  Receipt Date: 20210406
  Transmission Date: 20210717
  Serious: No
  Sender: FDA-Public Use
  Company Number: US-SOMERSET-2021-US-000050

PATIENT
  Age: 82 Year
  Sex: Female

DRUGS (4)
  1. BRIMONIDINE TARTRATE OPHTHALMIC SOLUTION [Suspect]
     Active Substance: BRIMONIDINE TARTRATE
     Dates: start: 20210113, end: 20210125
  2. LATANOPROST 0.005% OPHTHALMIC SOLUTION [Concomitant]
     Active Substance: LATANOPROST
  3. DORZOLAMIDE HCL/TIMOLOL MALEATE OPHTHALMIC SOLUTION [Concomitant]
  4. CHLORTHALIDONE 25 MG [Concomitant]
     Active Substance: CHLORTHALIDONE
     Route: 048

REACTIONS (3)
  - Headache [Recovered/Resolved]
  - Foreign body sensation in eyes [Recovered/Resolved]
  - Vision blurred [Recovered/Resolved]

NARRATIVE: CASE EVENT DATE: 20210120
